FAERS Safety Report 14936914 (Version 2)
Quarter: 2018Q2

REPORT INFORMATION
  Report Type: Spontaneous
  Country: FR (occurrence: FR)
  Receive Date: 20180525
  Receipt Date: 20180615
  Transmission Date: 20180711
  Serious: Yes (Life-Threatening, Hospitalization)
  Sender: FDA-Public Use
  Company Number: FR-ASTRAZENECA-2018SE66166

PATIENT
  Age: 62 Year
  Sex: Female
  Weight: 114 kg

DRUGS (15)
  1. VALDOXAN [Suspect]
     Active Substance: AGOMELATINE
     Route: 048
  2. CLOPIDOGREL [Suspect]
     Active Substance: CLOPIDOGREL BISULFATE
     Route: 048
  3. TRANXENE [Suspect]
     Active Substance: CLORAZEPATE DIPOTASSIUM
     Route: 048
  4. LYRICA [Suspect]
     Active Substance: PREGABALIN
     Route: 048
  5. ACEBUTOLOL [Suspect]
     Active Substance: ACEBUTOLOL
     Route: 048
  6. PERINDOPRIL [Suspect]
     Active Substance: PERINDOPRIL
     Route: 048
  7. ESOMEPRAZOLE MAGNESIUM. [Suspect]
     Active Substance: ESOMEPRAZOLE MAGNESIUM
     Route: 048
  8. IXPRIM [Suspect]
     Active Substance: ACETAMINOPHEN\TRAMADOL HYDROCHLORIDE
     Route: 048
  9. DUPHALAC [Suspect]
     Active Substance: LACTULOSE
     Route: 048
  10. XEROQUEL LP [Suspect]
     Active Substance: QUETIAPINE FUMARATE
     Route: 048
  11. TEGRETOL [Suspect]
     Active Substance: CARBAMAZEPINE
     Route: 048
  12. TERCIAN [Suspect]
     Active Substance: CYAMEMAZINE
     Route: 048
  13. ESOMEPRAZOLE [Suspect]
     Active Substance: ESOMEPRAZOLE
  14. EFFEXOR [Suspect]
     Active Substance: VENLAFAXINE HYDROCHLORIDE
     Route: 048
  15. EZETIMIBE. [Suspect]
     Active Substance: EZETIMIBE
     Route: 048

REACTIONS (5)
  - Coma [Recovered/Resolved]
  - Hypotension [Recovered/Resolved]
  - Bradycardia [Recovered/Resolved]
  - Hyponatraemia [Recovering/Resolving]
  - Toxicity to various agents [Recovered/Resolved]

NARRATIVE: CASE EVENT DATE: 20150310
